FAERS Safety Report 4893383-X (Version None)
Quarter: 2006Q1

REPORT INFORMATION
  Report Type: 
  Country: None (occurrence: None)
  Receive Date: 20060119
  Receipt Date: 20060103
  Transmission Date: 20060701
  Serious: Yes (Other)
  Sender: FDA-Public Use
  Company Number: 200410504BBE

PATIENT
  Age: 24 Year
  Sex: Female

DRUGS (23)
  1. HYPRHO-D [Suspect]
     Indication: PREGNANCY
     Dates: start: 19941216
  2. HYPRHO-D [Suspect]
     Indication: PREGNANCY
     Dates: start: 19950303
  3. HYPRHO-D [Suspect]
  4. IMMUNE GLOBULIN (HUMAN) [Suspect]
  5. INJECTABLE GLOBULIN          (IMMUNOGLOBULIN HUMAN NORMAL) [Suspect]
  6. ORTHO-NOVUM 7/7/7-21 [Concomitant]
  7. MONOPHASIL DESOGEN [Concomitant]
  8. METROGEL [Concomitant]
  9. CILEST [Concomitant]
  10. EXCEDRIN (MIGRAINE) [Concomitant]
  11. ALPRAZOLAM [Concomitant]
  12. CELEXA [Concomitant]
  13. PHENERGAN [Concomitant]
  14. SCOPOLAMINE PATCH [Concomitant]
  15. MACROBID [Concomitant]
  16. TIGAN [Concomitant]
  17. TEMAZEPAM [Concomitant]
  18. NORTRIPTYLINE HCL [Concomitant]
  19. CELEBREX [Concomitant]
  20. TYLENOL SINUS [Concomitant]
  21. ZOLOFT [Concomitant]
  22. XANAX [Concomitant]
  23. VITAMIN B COMPLEX CAP [Concomitant]

REACTIONS (12)
  - ABDOMINAL DISCOMFORT [None]
  - ADVERSE EVENT [None]
  - ANXIETY [None]
  - CONDITION AGGRAVATED [None]
  - DEPRESSION [None]
  - DIARRHOEA [None]
  - DRUG EXPOSURE DURING PREGNANCY [None]
  - HEADACHE [None]
  - HYPERHIDROSIS [None]
  - INSOMNIA [None]
  - STRESS [None]
  - VAGINITIS BACTERIAL [None]
